FAERS Safety Report 14553911 (Version 1)
Quarter: 2018Q1

REPORT INFORMATION
  Report Type: Spontaneous
  Country: US (occurrence: US)
  Receive Date: 20180220
  Receipt Date: 20180220
  Transmission Date: 20180509
  Serious: No
  Sender: FDA-Public Use
  Company Number: None

PATIENT
  Age: 79 Year
  Sex: Female
  Weight: 54.43 kg

DRUGS (15)
  1. K2 [Concomitant]
     Active Substance: JWH-018
  2. IBRANCE [Suspect]
     Active Substance: PALBOCICLIB
     Indication: CHEST WALL TUMOUR
     Route: 048
     Dates: start: 20180112
  3. VITAMIN C [Concomitant]
     Active Substance: ASCORBIC ACID
  4. VITAMIN D [Concomitant]
     Active Substance: CHOLECALCIFEROL
  5. FOLIC ACID. [Concomitant]
     Active Substance: FOLIC ACID
  6. ANASTROZOLE. [Concomitant]
     Active Substance: ANASTROZOLE
  7. ACIDOPHILLUS [Concomitant]
  8. ZOLPIDEM [Concomitant]
     Active Substance: ZOLPIDEM\ZOLPIDEM TARTRATE
  9. VITAMIN E [Concomitant]
     Active Substance: .ALPHA.-TOCOPHEROL
  10. BIOTIN [Concomitant]
     Active Substance: BIOTIN
  11. CALC W/MAGNESIUM [Concomitant]
  12. FLAXSEED [Concomitant]
     Active Substance: FLAX SEED
  13. CURCURMIN [Concomitant]
  14. GINGER. [Concomitant]
     Active Substance: GINGER
  15. BROMELAIN [Concomitant]
     Active Substance: BROMELAINS

REACTIONS (12)
  - Oral pain [None]
  - Flatulence [None]
  - Fatigue [None]
  - Rash [None]
  - Alopecia [None]
  - Hepatic pain [None]
  - Pallor [None]
  - Dysphonia [None]
  - Dry skin [None]
  - Vision blurred [None]
  - Diarrhoea [None]
  - Constipation [None]
